FAERS Safety Report 14126588 (Version 2)
Quarter: 2017Q4

REPORT INFORMATION
  Report Type: Report from Study
  Country: US (occurrence: US)
  Receive Date: 20171025
  Receipt Date: 20171228
  Transmission Date: 20180321
  Serious: Yes (Hospitalization)
  Sender: FDA-Public Use
  Company Number: US-ACTELION-A-NJ2016-146722

PATIENT
  Age: 56 Year
  Sex: Male

DRUGS (8)
  1. ADEMPAS [Concomitant]
     Active Substance: RIOCIGUAT
  2. ELIQUIS [Concomitant]
     Active Substance: APIXABAN
  3. OPSUMIT [Suspect]
     Active Substance: MACITENTAN
     Indication: PULMONARY ARTERIAL HYPERTENSION
     Dosage: 10 MG, QD
     Route: 048
     Dates: start: 20160518
  4. UPTRAVI [Suspect]
     Active Substance: SELEXIPAG
     Indication: PULMONARY ARTERIAL HYPERTENSION
     Dosage: 800 MCG, BID
     Route: 048
     Dates: start: 20170711
  5. WARFARIN [Concomitant]
     Active Substance: WARFARIN
  6. SILDENAFIL CITRATE. [Concomitant]
     Active Substance: SILDENAFIL CITRATE
  7. TYVASO [Concomitant]
     Active Substance: TREPROSTINIL
  8. UPTRAVI [Suspect]
     Active Substance: SELEXIPAG
     Dosage: 1000 MCG, BID
     Route: 048
     Dates: start: 20170624

REACTIONS (15)
  - Muscle injury [Unknown]
  - Migraine [Recovered/Resolved]
  - Angioplasty [Recovered/Resolved]
  - Road traffic accident [Unknown]
  - Pain in extremity [Recovered/Resolved]
  - Procedural complication [Unknown]
  - Arthritis [Unknown]
  - Limb injury [Unknown]
  - Vomiting [Recovered/Resolved]
  - Pain in jaw [Unknown]
  - Myalgia [Recovered/Resolved]
  - Nausea [Recovered/Resolved]
  - Arthralgia [Recovered/Resolved]
  - Haemoptysis [Unknown]
  - Hypotension [Unknown]

NARRATIVE: CASE EVENT DATE: 20170622
